FAERS Safety Report 14851947 (Version 1)
Quarter: 2018Q2

REPORT INFORMATION
  Report Type: Spontaneous
  Country: US (occurrence: US)
  Receive Date: 20180507
  Receipt Date: 20180507
  Transmission Date: 20180711
  Serious: Yes (Other)
  Sender: FDA-Public Use
  Company Number: US-AMGEN-USASP2018059018

PATIENT
  Age: 65 Year
  Sex: Female

DRUGS (1)
  1. PROLIA [Suspect]
     Active Substance: DENOSUMAB
     Indication: OSTEOPOROSIS POSTMENOPAUSAL
     Dosage: UNK
     Route: 065

REACTIONS (7)
  - Musculoskeletal stiffness [Unknown]
  - Gait inability [Recovered/Resolved]
  - Inflammation [Unknown]
  - Muscle mass [Unknown]
  - Blood cholesterol increased [Unknown]
  - Musculoskeletal pain [Recovering/Resolving]
  - Multiple fractures [Unknown]

NARRATIVE: CASE EVENT DATE: 2016
